FAERS Safety Report 5711256-7 (Version None)
Quarter: 2008Q2

REPORT INFORMATION
  Report Type: 
  Country: None (occurrence: None)
  Receive Date: 20080415
  Receipt Date: 20080403
  Transmission Date: 20081010
  Serious: Yes (Life-Threatening)
  Sender: FDA-Public Use
  Company Number: 2008BI007286

PATIENT
  Age: 38 Year
  Sex: Female

DRUGS (1)
  1. TYSABRI [Suspect]
     Indication: RELAPSING-REMITTING MULTIPLE SCLEROSIS
     Dosage: 300 MG IV
     Route: 042

REACTIONS (9)
  - BALANCE DISORDER [None]
  - CARBOHYDRATE ANTIGEN 125 INCREASED [None]
  - CHROMATURIA [None]
  - CONDITION AGGRAVATED [None]
  - DIPLOPIA [None]
  - DYSURIA [None]
  - NAUSEA [None]
  - OVARIAN CYST [None]
  - VOMITING [None]
